FAERS Safety Report 13921269 (Version 1)
Quarter: 2017Q3

REPORT INFORMATION
  Report Type: Spontaneous
  Country: US (occurrence: US)
  Receive Date: 20170830
  Receipt Date: 20170830
  Transmission Date: 20171127
  Serious: Yes (Other)
  Sender: FDA-Public Use
  Company Number: US-THE MENTHOLATUM COMPANY-2025306

PATIENT
  Sex: Female

DRUGS (1)
  1. WELLPATCH CAPSAICIN PAIN RELIEF [Suspect]
     Active Substance: CAPSAICIN
     Route: 061
     Dates: start: 20170811, end: 20170811

REACTIONS (1)
  - Blister [Unknown]

NARRATIVE: CASE EVENT DATE: 20170811
